FAERS Safety Report 21278362 (Version 1)
Quarter: 2022Q3

REPORT INFORMATION
  Report Type: Spontaneous
  Country: CN (occurrence: CN)
  Receive Date: 20220831
  Receipt Date: 20220831
  Transmission Date: 20221027
  Serious: Yes (Life-Threatening, Other)
  Sender: FDA-Public Use
  Company Number: CN-FOSUNKITE-FOSUNKITE-20220224

PATIENT
  Age: 59 Year
  Sex: Male

DRUGS (4)
  1. YESCARTA [Suspect]
     Active Substance: AXICABTAGENE CILOLEUCEL
     Indication: Diffuse large B-cell lymphoma stage IV
     Dosage: 68 MILLILITER, SINGLE
     Route: 041
     Dates: start: 20220810, end: 20220810
  2. CYCLOPHOSPHAMIDE [Concomitant]
     Active Substance: CYCLOPHOSPHAMIDE
  3. FLUDARABINE [Concomitant]
     Active Substance: FLUDARABINE PHOSPHATE
  4. RITUXIMAB [Concomitant]
     Active Substance: RITUXIMAB

REACTIONS (13)
  - Multiple organ dysfunction syndrome [Unknown]
  - Immune effector cell-associated neurotoxicity syndrome [Unknown]
  - Cytokine release syndrome [Not Recovered/Not Resolved]
  - Pneumonia [Unknown]
  - Cardiac failure [Unknown]
  - Hypokalaemia [Unknown]
  - Respiratory failure [Unknown]
  - Renal impairment [Unknown]
  - Sepsis [Unknown]
  - Septic shock [Unknown]
  - Coagulopathy [Unknown]
  - Hypoproteinaemia [Unknown]
  - Metabolic acidosis [Unknown]

NARRATIVE: CASE EVENT DATE: 20220810
